FAERS Safety Report 5882638-8 (Version None)
Quarter: 2008Q3

REPORT INFORMATION
  Report Type: 
  Country: None (occurrence: None)
  Receive Date: 20080913
  Receipt Date: 20080811
  Transmission Date: 20090109
  Serious: No
  Sender: FDA-Public Use
  Company Number: US-ABBOTT-08P-163-0470194-00

PATIENT
  Sex: Female
  Weight: 44.946 kg

DRUGS (6)
  1. HUMIRA [Suspect]
     Indication: RHEUMATOID ARTHRITIS
     Route: 058
     Dates: start: 20070504
  2. HYDROCODONE BITARTRATE [Concomitant]
     Indication: CEREBROVASCULAR ACCIDENT
     Route: 048
  3. LEVETIRACETAM [Concomitant]
     Indication: CONVULSION PROPHYLAXIS
     Route: 048
  4. PANTOPRAZOLE [Concomitant]
     Indication: PROPHYLAXIS AGAINST GASTROINTESTINAL ULCER
     Route: 048
  5. TRAZODANE [Concomitant]
     Indication: INSOMNIA
     Route: 048
  6. TRAZODANE [Concomitant]
     Indication: ANXIETY

REACTIONS (1)
  - GINGIVAL BLEEDING [None]
